FAERS Safety Report 14478790 (Version 5)
Quarter: 2023Q1

REPORT INFORMATION
  Report Type: Spontaneous
  Country: CZ (occurrence: CZ)
  Receive Date: 20180202
  Receipt Date: 20230203
  Transmission Date: 20230418
  Serious: Yes (Other)
  Sender: FDA-Public Use
  Company Number: CZ-ACCORD-063104

PATIENT
  Age: 61 Year
  Sex: Female

DRUGS (5)
  1. FLUOROURACIL [Suspect]
     Active Substance: FLUOROURACIL
     Indication: Colorectal cancer
     Dosage: FOLFOX?FOLFIRI
     Dates: start: 201211
  2. OXALIPLATIN [Suspect]
     Active Substance: OXALIPLATIN
     Indication: Colorectal cancer
     Dosage: FOLFOX ALSO RECEIVED FROM JUN-2014 TO AUG-2014
     Dates: start: 201211
  3. LEUCOVORIN [Suspect]
     Active Substance: LEUCOVORIN
     Indication: Colorectal cancer
     Dosage: FOLFOX?FOLFIRI
     Dates: start: 201211
  4. AFLIBERCEPT [Concomitant]
     Active Substance: AFLIBERCEPT
     Dates: start: 20140908, end: 20160111
  5. BEVACIZUMAB [Concomitant]
     Active Substance: BEVACIZUMAB
     Indication: Colorectal cancer
     Dates: start: 20140623

REACTIONS (1)
  - Hypertension [Recovered/Resolved]

NARRATIVE: CASE EVENT DATE: 20140601
